FAERS Safety Report 25473240 (Version 1)
Quarter: 2025Q2

REPORT INFORMATION
  Report Type: Spontaneous
  Country: US (occurrence: None)
  Receive Date: 20250623
  Receipt Date: 20250623
  Transmission Date: 20250716
  Serious: Yes (Hospitalization)
  Sender: FDA-CTU
  Company Number: None

PATIENT
  Age: 82 Year
  Sex: Female

DRUGS (2)
  1. TAVNEOS [Suspect]
     Active Substance: AVACOPAN
     Dosage: FREQUENCY : TWICE A DAY;?
     Route: 048
     Dates: start: 20250618
  2. PREDNISONE [Suspect]
     Active Substance: PREDNISONE
     Dates: start: 20250618

REACTIONS (2)
  - Diarrhoea [None]
  - Blood glucose increased [None]

NARRATIVE: CASE EVENT DATE: 20250623
